FAERS Safety Report 15171196 (Version 1)
Quarter: 2018Q3

REPORT INFORMATION
  Report Type: Spontaneous
  Country: US (occurrence: US)
  Receive Date: 20180720
  Receipt Date: 20180720
  Transmission Date: 20181010
  Serious: Yes (Other)
  Sender: FDA-Public Use
  Company Number: US-GLAXOSMITHKLINE-US2018127895

PATIENT
  Age: 67 Year
  Sex: Female

DRUGS (3)
  1. VENTOLIN HFA [Suspect]
     Active Substance: ALBUTEROL SULFATE
     Indication: MULTIPLE ALLERGIES
  2. ASPIRIN. [Concomitant]
     Active Substance: ASPIRIN
  3. VENTOLIN HFA [Suspect]
     Active Substance: ALBUTEROL SULFATE
     Indication: SINUS DISORDER
     Dosage: 1 PUFF(S), PRN
     Route: 055
     Dates: start: 2003

REACTIONS (7)
  - Sinus operation [Recovered/Resolved]
  - Intervertebral disc disorder [Unknown]
  - Spinal operation [Recovering/Resolving]
  - Sinusitis [Recovering/Resolving]
  - Stress [Unknown]
  - Blood pressure increased [Recovering/Resolving]
  - Product use in unapproved indication [Unknown]

NARRATIVE: CASE EVENT DATE: 2003
